FAERS Safety Report 9256364 (Version 2)
Quarter: 2014Q1

REPORT INFORMATION
  Report Type: Spontaneous
  Country: US (occurrence: US)
  Receive Date: 20130425
  Receipt Date: 20140304
  Transmission Date: 20141002
  Serious: Yes (Other)
  Sender: FDA-Public Use
  Company Number: US-009507513-1304USA013891

PATIENT
  Sex: Female

DRUGS (3)
  1. FOSAMAX [Suspect]
     Dosage: UNK
     Route: 048
     Dates: start: 19970111, end: 20060413
  2. FOSAMAX PLUS D [Suspect]
     Dosage: UNK
     Route: 048
     Dates: start: 20060413, end: 20080429
  3. ALENDRONATE SODIUM [Suspect]
     Dosage: UNK
     Route: 048
     Dates: start: 20080429, end: 201004

REACTIONS (3)
  - Femur fracture [Unknown]
  - Low turnover osteopathy [Unknown]
  - Osteoporosis [Unknown]
